FAERS Safety Report 20760510 (Version 1)
Quarter: 2022Q2

REPORT INFORMATION
  Report Type: Report from Study
  Country: US (occurrence: US)
  Receive Date: 20220428
  Receipt Date: 20220428
  Transmission Date: 20220720
  Serious: No
  Sender: FDA-Public Use
  Company Number: US-BIOVITRUM-2022US01342

PATIENT
  Age: 53 Year
  Sex: Female

DRUGS (2)
  1. KINERET [Suspect]
     Active Substance: ANAKINRA
     Indication: Pericarditis rheumatic
     Route: 058
     Dates: start: 20220104
  2. COVID-19 VACCINE NOS [Suspect]
     Active Substance: COVID-19 VACCINE NOS

REACTIONS (15)
  - Throat irritation [Unknown]
  - Fatigue [Unknown]
  - Joint swelling [Not Recovered/Not Resolved]
  - Peripheral swelling [Not Recovered/Not Resolved]
  - Swelling face [Not Recovered/Not Resolved]
  - COVID-19 [Unknown]
  - Limb discomfort [Unknown]
  - Musculoskeletal discomfort [Unknown]
  - Depression [Unknown]
  - Migraine [Unknown]
  - Pain [Unknown]
  - Injection site urticaria [Unknown]
  - Injection site bruising [Unknown]
  - Product dose omission issue [Unknown]
  - Off label use [Unknown]

NARRATIVE: CASE EVENT DATE: 20220104
